FAERS Safety Report 17990709 (Version 2)
Quarter: 2020Q3

REPORT INFORMATION
  Report Type: Report from Study
  Country: CO (occurrence: CO)
  Receive Date: 20200707
  Receipt Date: 20200721
  Transmission Date: 20201103
  Serious: No
  Sender: FDA-Public Use
  Company Number: NVSC2020CO190323

PATIENT
  Sex: Male
  Weight: 66 kg

DRUGS (5)
  1. LANTUS [Concomitant]
     Active Substance: INSULIN GLARGINE
     Indication: DIABETES MELLITUS
     Dosage: 37 UNIT, QHS (DAILY AT NIGHT), STARTED 11 YEARS AGO
     Route: 058
  2. VOTRIENT [Suspect]
     Active Substance: PAZOPANIB HYDROCHLORIDE
     Indication: METASTATIC RENAL CELL CARCINOMA
     Dosage: 800 MG, QD
     Route: 048
     Dates: start: 201802
  3. CALCITRIOL. [Concomitant]
     Active Substance: CALCITRIOL
     Indication: PROPHYLAXIS
     Dosage: 0.25 MG, QD, STARTED 5 YEARS AGO
     Route: 048
  4. APIDRA [Concomitant]
     Active Substance: INSULIN GLULISINE
     Indication: DIABETES MELLITUS
     Dosage: 22 UNIT, BID (DURING BREAKFAST AND DURING LUNCH), STARTED 11 YEARS AGO
     Route: 058
  5. LEVOTHYROXINE. [Concomitant]
     Active Substance: LEVOTHYROXINE
     Indication: HYPOTHYROIDISM
     Dosage: 1 DF, QD (175 MF FROM MONDAY TO FRIDAY AND 125 MG ON SATURDAY AND SUNDAY), STARTED 15 YEARS AGO
     Route: 048

REACTIONS (2)
  - Fatigue [Recovering/Resolving]
  - Gait inability [Recovered/Resolved]
